FAERS Safety Report 7274939-6 (Version None)
Quarter: 2011Q1

REPORT INFORMATION
  Report Type: 
  Country: None (occurrence: None)
  Receive Date: 20110204
  Receipt Date: 20110127
  Transmission Date: 20110831
  Serious: Yes (Hospitalization, Other)
  Sender: FDA-Public Use
  Company Number: NL-JNJFOC-20071200267

PATIENT
  Sex: Male

DRUGS (3)
  1. KETOCONAZOLE [Concomitant]
     Route: 065
  2. TRISPORAL [Suspect]
     Dosage: FOR A PERIOD OF 10 WEEKS
     Route: 065
  3. TRISPORAL [Suspect]
     Indication: TINEA PEDIS
     Route: 065

REACTIONS (3)
  - MEDICATION ERROR [None]
  - PSEUDOCYST [None]
  - PANCREATITIS RELAPSING [None]
